FAERS Safety Report 5770837-5 (Version None)
Quarter: 2008Q2

REPORT INFORMATION
  Report Type: 
  Country: None (occurrence: None)
  Receive Date: 20080613
  Receipt Date: 20080515
  Transmission Date: 20081010
  Serious: No
  Sender: FDA-Public Use
  Company Number: US-ABBOTT-08P-163-0452023-00

PATIENT
  Age: 63 Year
  Sex: Female
  Weight: 74.91 kg

DRUGS (4)
  1. HUMIRA [Suspect]
     Indication: RHEUMATOID ARTHRITIS
     Route: 058
     Dates: start: 20070901
  2. ETODOLAC [Suspect]
     Indication: RHEUMATOID ARTHRITIS
     Route: 048
     Dates: start: 20080201, end: 20080415
  3. ETODOLAC [Suspect]
     Route: 048
     Dates: start: 20080415
  4. TRAMADOL HCL [Concomitant]
     Indication: PAIN
     Dates: start: 20070901

REACTIONS (2)
  - DRUG INEFFECTIVE [None]
  - RENAL FAILURE [None]
